FAERS Safety Report 8022706-8 (Version None)
Quarter: 2012Q1

REPORT INFORMATION
  Report Type: 
  Country: None (occurrence: None)
  Receive Date: 20120104
  Receipt Date: 20120102
  Transmission Date: 20120608
  Serious: Yes (Hospitalization)
  Sender: FDA-Public Use
  Company Number: FR-ROCHE-1026948

PATIENT
  Sex: Female
  Weight: 59 kg

DRUGS (1)
  1. VEMURAFENIB [Suspect]
     Indication: MALIGNANT MELANOMA STAGE IV
     Route: 048
     Dates: start: 20111003

REACTIONS (2)
  - MENINGITIS [None]
  - EPILEPSY [None]
